FAERS Safety Report 7398773-1 (Version None)
Quarter: 2011Q2

REPORT INFORMATION
  Report Type: 
  Country: None (occurrence: None)
  Receive Date: 20110401
  Receipt Date: 20110401
  Transmission Date: 20111010
  Serious: Yes (Hospitalization)
  Sender: FDA-Public Use
  Company Number: None

PATIENT
  Age: 63 Year
  Sex: Male
  Weight: 153.1 kg

DRUGS (1)
  1. DESFLURANE [Suspect]
     Indication: SURGERY
     Dates: start: 20110330, end: 20110330

REACTIONS (2)
  - BRADYCARDIA [None]
  - HYPOTENSION [None]
